FAERS Safety Report 5012810-0 (Version None)
Quarter: 2006Q2

REPORT INFORMATION
  Report Type: 
  Country: None (occurrence: None)
  Receive Date: 20060530
  Receipt Date: 20060322
  Transmission Date: 20061013
  Serious: Yes (Other)
  Sender: FDA-Public Use
  Company Number: US-BRISTOL-MYERS SQUIBB COMPANY-13323233

PATIENT
  Age: 76 Year
  Sex: Female
  Weight: 67 kg

DRUGS (15)
  1. ERBITUX [Suspect]
     Indication: COLON CANCER METASTATIC
     Dosage: 100 MG/50 ML. START DATE JUNE 2005.
     Route: 042
     Dates: start: 20050101, end: 20050101
  2. CAMPTOSAR [Concomitant]
     Dates: start: 20050601
  3. AVASTIN [Concomitant]
     Dates: start: 20050601
  4. BENADRYL [Concomitant]
     Indication: PREMEDICATION
     Dates: start: 20050101, end: 20050101
  5. ATIVAN [Concomitant]
     Indication: PREMEDICATION
     Dates: start: 20050101, end: 20050101
  6. KYTRIL [Concomitant]
     Indication: PREMEDICATION
     Dates: start: 20050101, end: 20050101
  7. DEXAMETHASONE TAB [Concomitant]
     Indication: PREMEDICATION
     Dates: start: 20050101, end: 20050101
  8. EMEND [Concomitant]
     Indication: PREMEDICATION
     Dates: start: 20050101, end: 20050101
  9. LIPITOR [Concomitant]
  10. GLUCOSAMINE [Concomitant]
  11. LISINOPRIL [Concomitant]
  12. ASCORBIC ACID [Concomitant]
  13. ZYRTEC [Concomitant]
  14. LOMOTIL [Concomitant]
  15. IMODIUM [Concomitant]

REACTIONS (3)
  - BLOOD MAGNESIUM DECREASED [None]
  - ONYCHOCLASIS [None]
  - RASH [None]
